FAERS Safety Report 9331847 (Version 1)
Quarter: 2013Q2

REPORT INFORMATION
  Report Type: Spontaneous
  Country: FR (occurrence: FR)
  Receive Date: 20130605
  Receipt Date: 20130605
  Transmission Date: 20140414
  Serious: Yes (Hospitalization, Other)
  Sender: FDA-Public Use
  Company Number: FR-PFIZER INC-2013167474

PATIENT
  Age: 56 Year
  Sex: Female

DRUGS (6)
  1. RAMIPRIL [Suspect]
     Dosage: UNK
  2. ESOMEPRAZOLE [Suspect]
     Dosage: UNK
  3. CORTANCYL [Suspect]
     Dosage: UNK
     Dates: start: 20130126
  4. NEORAL [Suspect]
     Dosage: UNK
     Dates: start: 20130126
  5. NEORAL [Suspect]
     Dosage: UNK
     Dates: start: 20130508
  6. CELLCEPT [Suspect]
     Dosage: UNK
     Dates: start: 20130126

REACTIONS (3)
  - Cholestasis [Not Recovered/Not Resolved]
  - Brain abscess [Unknown]
  - Hepatitis [Unknown]
